FAERS Safety Report 6755552-3 (Version None)
Quarter: 2010Q2

REPORT INFORMATION
  Report Type: 
  Country: None (occurrence: None)
  Receive Date: 20100604
  Receipt Date: 20100528
  Transmission Date: 20101027
  Serious: Yes (Hospitalization)
  Sender: FDA-Public Use
  Company Number: HR-JNJFOC-20100600177

PATIENT
  Age: 50 Year
  Sex: Male

DRUGS (1)
  1. RISPOLEPT [Suspect]
     Indication: SCHIZOPHRENIA, DISORGANISED TYPE
     Route: 048

REACTIONS (1)
  - HOSPITALISATION [None]
